FAERS Safety Report 20774881 (Version 3)
Quarter: 2022Q4

REPORT INFORMATION
  Report Type: Report from Study
  Country: GR (occurrence: GR)
  Receive Date: 20220502
  Receipt Date: 20221010
  Transmission Date: 20230113
  Serious: Yes (Other)
  Sender: FDA-Public Use
  Company Number: GR-ABBVIE-22K-066-4362763-00

PATIENT
  Age: 75 Year
  Sex: Female
  Weight: 75 kg

DRUGS (14)
  1. CARBIDOPA\LEVODOPA [Suspect]
     Active Substance: CARBIDOPA\LEVODOPA
     Indication: Parkinson^s disease
     Dosage: MORNING DOSE: 12.0 ML; CONTINUOUS RATE: 3.3 ML/H; EXTRA DOSE: 2.5 ML
     Route: 050
     Dates: start: 20151013
  2. CARBIDOPA\LEVODOPA [Suspect]
     Active Substance: CARBIDOPA\LEVODOPA
     Dosage: MORNING DOSE: 12.0 ML; CONTINUOUS RATE: 3.7 ML/H; EXTRA DOSE: 2.5 ML
     Route: 050
  3. CARBIDOPA\LEVODOPA [Suspect]
     Active Substance: CARBIDOPA\LEVODOPA
     Dosage: MORNING DOSE: 5.0 ML; CONTINUOUS RATE: 4.1 ML/H; EXTRA DOSE: 2.5 ML
     Route: 050
  4. CARBIDOPA\LEVODOPA [Suspect]
     Active Substance: CARBIDOPA\LEVODOPA
     Dosage: MORNING DOSE: 5.0ML; CONTINUOUS RATE: 4.2ML/H; EXTRA DOSE: 2.1ML (24HR ADMINISTRATION)
  5. Olmesartan and amlodipine and hydrochlorothiazide (Orizal Plus) [Concomitant]
     Indication: Product used for unknown indication
     Dosage: (20+5+12.5)MG
     Route: 048
  6. Venlafaxine (Melocin) [Concomitant]
     Indication: Depression
     Route: 048
  7. Venlafaxine (Melocin) [Concomitant]
     Indication: Depression
     Route: 048
  8. Pramipexole (Mirapexin) [Concomitant]
     Indication: Parkinson^s disease
     Dosage: UNIT DOSE: 0.35MG ; FORM STRENGTH: 0.7MG
     Route: 048
  9. DISTANEURINE [Concomitant]
     Indication: Product used for unknown indication
     Dosage: 1X1 AT NIGHT BEFORE BED
     Route: 048
  10. Clomethiazole (Distaneurin) [Concomitant]
     Indication: Product used for unknown indication
     Route: 048
  11. ALBUTEROL [Concomitant]
     Active Substance: ALBUTEROL
     Indication: Asthma
     Route: 055
  12. Etancercept (Enbrel) [Concomitant]
     Indication: Rheumatoid arthritis
     Route: 050
  13. levodopa + benserazide (Madopar) [Concomitant]
     Indication: Poor quality sleep
     Dosage: FORM STRENGTH: 250 MG
     Route: 048
  14. AMLODIPINE BESYLATE\HYDROCHLOROTHIAZIDE\OLMESARTAN MEDOXOMIL [Concomitant]
     Active Substance: AMLODIPINE BESYLATE\HYDROCHLOROTHIAZIDE\OLMESARTAN MEDOXOMIL
     Indication: Hypertension
     Dosage: 1X1 DEPENDING ON ARTERIAL PRESSURE
     Route: 048

REACTIONS (8)
  - Cerebrovascular accident [Unknown]
  - Musculoskeletal stiffness [Unknown]
  - Tremor [Not Recovered/Not Resolved]
  - Muscular weakness [Not Recovered/Not Resolved]
  - Mobility decreased [Not Recovered/Not Resolved]
  - Unevaluable event [Not Recovered/Not Resolved]
  - Hallucination [Unknown]
  - Communication disorder [Unknown]

NARRATIVE: CASE EVENT DATE: 20220409
